FAERS Safety Report 20620881 (Version 7)
Quarter: 2022Q2

REPORT INFORMATION
  Report Type: Spontaneous
  Country: PT (occurrence: PT)
  Receive Date: 20220322
  Receipt Date: 20220614
  Transmission Date: 20220720
  Serious: Yes (Hospitalization, Disabling, Other)
  Sender: FDA-Public Use
  Company Number: PT-MYLANLABS-2022M1020951

PATIENT
  Age: 54 Year
  Sex: Female

DRUGS (2)
  1. METFORMIN [Suspect]
     Active Substance: METFORMIN HYDROCHLORIDE
     Indication: Type 2 diabetes mellitus
     Dosage: 2000 MILLIGRAM, QD (1000 MILLIGRAM, TWO TIMES A DAY)
     Route: 002
  2. METFORMIN [Suspect]
     Active Substance: METFORMIN HYDROCHLORIDE
     Dosage: 1000 MILLIGRAM, QD

REACTIONS (12)
  - Blood lactic acid increased [Recovered/Resolved]
  - Anion gap [Not Recovered/Not Resolved]
  - Lactic acidosis [Unknown]
  - Acute kidney injury [Recovering/Resolving]
  - Oliguria [Recovering/Resolving]
  - Metabolic acidosis [Recovering/Resolving]
  - Polyuria [Recovering/Resolving]
  - Fatigue [Recovering/Resolving]
  - Anion gap increased [Unknown]
  - Hypoperfusion [Not Recovered/Not Resolved]
  - Hypoxia [Not Recovered/Not Resolved]
  - Dehydration [Not Recovered/Not Resolved]
